FAERS Safety Report 8276947-5 (Version None)
Quarter: 2012Q2

REPORT INFORMATION
  Report Type: 
  Country: None (occurrence: None)
  Receive Date: 20120412
  Receipt Date: 20120402
  Transmission Date: 20120825
  Serious: Yes (Hospitalization)
  Sender: FDA-Public Use
  Company Number: FR-ROCHE-1043099

PATIENT
  Sex: Male

DRUGS (8)
  1. AUGMENTIN '125' [Suspect]
     Indication: APPENDICECTOMY
     Dates: start: 20120118, end: 20120118
  2. DIPRIVAN [Concomitant]
     Route: 042
     Dates: start: 20120120, end: 20120120
  3. SEVOFLURANE [Concomitant]
     Route: 055
     Dates: start: 20120120, end: 20120120
  4. ISOFLURANE [Concomitant]
     Route: 055
     Dates: start: 20120120, end: 20120120
  5. SPASFON [Concomitant]
     Route: 042
     Dates: start: 20120118, end: 20120118
  6. ROCEPHIN [Suspect]
     Indication: APPENDICECTOMY
     Route: 042
     Dates: start: 20120120, end: 20120121
  7. NIMBEX [Concomitant]
     Route: 042
     Dates: start: 20120120, end: 20120120
  8. SUFENTANIL CITRATE [Concomitant]
     Route: 042
     Dates: start: 20120120, end: 20120120

REACTIONS (1)
  - ACUTE GENERALISED EXANTHEMATOUS PUSTULOSIS [None]
